FAERS Safety Report 20709155 (Version 1)
Quarter: 2022Q2

REPORT INFORMATION
  Report Type: Spontaneous
  Country: US (occurrence: None)
  Receive Date: 20220413
  Receipt Date: 20220413
  Transmission Date: 20220721
  Serious: Yes (Death)
  Sender: FDA-Public Use
  Company Number: None

PATIENT
  Sex: Female

DRUGS (3)
  1. TACROLIMUS [Suspect]
     Active Substance: TACROLIMUS
     Indication: Liver transplant
     Route: 048
     Dates: start: 20220303, end: 202204
  2. ENVARSUS XR [Concomitant]
  3. MYCOPHENOLATE MOFETIL [Concomitant]

REACTIONS (1)
  - Death [None]
